FAERS Safety Report 9249321 (Version 1)
Quarter: 2013Q2

REPORT INFORMATION
  Report Type: Other
  Country: GB (occurrence: GB)
  Receive Date: 20130423
  Receipt Date: 20130423
  Transmission Date: 20140414
  Serious: Yes (Other)
  Sender: FDA-Public Use
  Company Number: GB-ACTAVIS-2013-06920

PATIENT
  Sex: Female

DRUGS (1)
  1. TRAMADOL HYDROCHLORIDE (UNKNOWN) [Suspect]
     Indication: NECK PAIN
     Dosage: 50 MG, UNKNOWN
     Route: 065

REACTIONS (8)
  - Paraesthesia oral [Unknown]
  - Lip swelling [Unknown]
  - Dry mouth [Unknown]
  - Lip dry [Unknown]
  - Vomiting [Unknown]
  - Palpitations [Unknown]
  - Tremor [Unknown]
  - Pruritus [Unknown]
